FAERS Safety Report 7383119-5 (Version None)
Quarter: 2011Q1

REPORT INFORMATION
  Report Type: 
  Country: None (occurrence: None)
  Receive Date: 20110322
  Receipt Date: 20110308
  Transmission Date: 20110831
  Serious: Yes (Disabling)
  Sender: FDA-Public Use
  Company Number: 2011SP010703

PATIENT
  Age: 36 Year
  Sex: Female

DRUGS (5)
  1. ASMANEX TWISTHALER [Suspect]
     Indication: PRODUCT USED FOR UNKNOWN INDICATION
     Dosage: INH
     Route: 055
     Dates: start: 20080101
  2. FORADIL [Suspect]
     Indication: BRONCHITIS
     Dosage: INH
     Route: 055
     Dates: start: 20080101
  3. LORATADINE [Concomitant]
  4. ALBUTEROL [Concomitant]
  5. MUCINEX [Concomitant]

REACTIONS (5)
  - HYPOAESTHESIA [None]
  - PARAESTHESIA [None]
  - IMPAIRED WORK ABILITY [None]
  - MUSCLE RUPTURE [None]
  - BRONCHITIS [None]
